FAERS Safety Report 7960936-1 (Version None)
Quarter: 2011Q4

REPORT INFORMATION
  Report Type: 
  Country: None (occurrence: None)
  Receive Date: 20111121
  Receipt Date: 20111012
  Transmission Date: 20120403
  Serious: No
  Sender: FDA-Public Use
  Company Number: 1000024669

PATIENT
  Age: 17 Year
  Sex: Female

DRUGS (6)
  1. VIIBRYD [Suspect]
     Indication: BIPOLAR DISORDER
     Dosage: 10 MG (10 MG, 1 IN 1 D), ORAL; 15 MG (15 MG, 1 IN 1 D), ORAL
     Route: 048
     Dates: start: 20110830, end: 20110912
  2. VIIBRYD [Suspect]
     Indication: DEPRESSION
     Dosage: 10 MG (10 MG, 1 IN 1 D), ORAL; 15 MG (15 MG, 1 IN 1 D), ORAL
     Route: 048
     Dates: start: 20110830, end: 20110912
  3. VIIBRYD [Suspect]
     Indication: BIPOLAR DISORDER
     Dosage: 10 MG (10 MG, 1 IN 1 D), ORAL; 15 MG (15 MG, 1 IN 1 D), ORAL
     Route: 048
     Dates: start: 20110913, end: 20111006
  4. VIIBRYD [Suspect]
     Indication: DEPRESSION
     Dosage: 10 MG (10 MG, 1 IN 1 D), ORAL; 15 MG (15 MG, 1 IN 1 D), ORAL
     Route: 048
     Dates: start: 20110913, end: 20111006
  5. VIIBRYD [Suspect]
     Indication: DEPRESSION
     Dosage: 20 MG (20 MG, 1 IN 1 D),ORAL
     Route: 048
     Dates: start: 20111007, end: 20111011
  6. VIIBRYD [Suspect]
     Indication: BIPOLAR DISORDER
     Dosage: 20 MG (20 MG, 1 IN 1 D),ORAL
     Route: 048
     Dates: start: 20111007, end: 20111011

REACTIONS (4)
  - OFF LABEL USE [None]
  - NAUSEA [None]
  - INSOMNIA [None]
  - ALOPECIA [None]
